FAERS Safety Report 9928678 (Version 4)
Quarter: 2014Q2

REPORT INFORMATION
  Report Type: Spontaneous
  Country: CA (occurrence: None)
  Receive Date: 20140225
  Receipt Date: 20140514
  Transmission Date: 20141212
  Serious: Yes (Hospitalization, Other)
  Sender: FDA-Public Use
  Company Number: 2014CA003030

PATIENT
  Age: 65 Year
  Sex: Female
  Weight: 81 kg

DRUGS (7)
  1. PONATINIB [Suspect]
     Indication: CHRONIC MYELOID LEUKAEMIA
     Route: 048
     Dates: start: 20130219, end: 20140211
  2. AMLODIPINE (AMLODIPINE) [Concomitant]
  3. RISEDRONATE SODIUM HYDRATE [Concomitant]
  4. DICLOFENAC (DICLOFENAC) [Concomitant]
  5. LEVOTHYROXINE (LEVOTHYROXINE) [Concomitant]
  6. PANTOLOC (PANTOPRAZOLE SODIUM SESQUIHYDRATE) [Concomitant]
  7. NIFEDIPINE (NIFEDIPINE) (NIFEDIPINE) [Concomitant]

REACTIONS (1)
  - Cerebrovascular accident [None]
